FAERS Safety Report 6326977-5 (Version None)
Quarter: 2009Q3

REPORT INFORMATION
  Report Type: 
  Country: None (occurrence: None)
  Receive Date: 20090825
  Receipt Date: 20090820
  Transmission Date: 20100115
  Serious: Yes (Other)
  Sender: FDA-Public Use
  Company Number: CA-TEVA-206607USA

PATIENT
  Age: 41 Year
  Sex: Male

DRUGS (7)
  1. MERCAPTOPURINE [Suspect]
     Indication: COLITIS ULCERATIVE
     Route: 048
     Dates: start: 20080901
  2. PREDNISONE TAB [Suspect]
     Indication: COLITIS ULCERATIVE
     Dosage: 50 MG AND 80 MG DAILY
     Route: 048
     Dates: start: 20080901, end: 20090401
  3. MESALAZINE [Concomitant]
     Route: 054
     Dates: start: 20080101, end: 20080801
  4. MESALAZINE [Concomitant]
     Dosage: 2-4 TABLETS DAILY
     Route: 048
     Dates: start: 20080901, end: 20090201
  5. MEZAVANT [Concomitant]
     Dosage: 2-4 TABLETS DAILY
     Route: 048
     Dates: start: 20090201
  6. OXAZEPAM [Concomitant]
     Route: 048
     Dates: start: 20090101
  7. PANTOPRAZOLE SODIUM [Concomitant]
     Route: 048
     Dates: start: 20081101

REACTIONS (4)
  - ARTHRALGIA [None]
  - MUSCULOSKELETAL PAIN [None]
  - OEDEMA PERIPHERAL [None]
  - VASCULITIS NECROTISING [None]
